APPROVED DRUG PRODUCT: BECLOMETHASONE DIPROPIONATE
Active Ingredient: BECLOMETHASONE DIPROPIONATE
Strength: 0.04MG/INH
Dosage Form/Route: AEROSOL, METERED;INHALATION
Application: A213811 | Product #001
Applicant: AMNEAL IRELAND LTD
Approved: Dec 16, 2025 | RLD: No | RS: Yes | Type: RX